FAERS Safety Report 7415758-7 (Version None)
Quarter: 2011Q2

REPORT INFORMATION
  Report Type: 
  Country: None (occurrence: None)
  Receive Date: 20110414
  Receipt Date: 20110412
  Transmission Date: 20111010
  Serious: No
  Sender: FDA-Public Use
  Company Number: US-TEVA-276619USA

PATIENT
  Sex: Male

DRUGS (2)
  1. TIOTROPIUM BROMIDE [Suspect]
  2. ALBUTEROL SULFATE AUTOHALER [Suspect]
     Route: 055

REACTIONS (1)
  - DRUG INEFFECTIVE [None]
